FAERS Safety Report 24792312 (Version 1)
Quarter: 2024Q4

REPORT INFORMATION
  Report Type: Spontaneous
  Country: JP (occurrence: JP)
  Receive Date: 20241231
  Receipt Date: 20241231
  Transmission Date: 20250115
  Serious: Yes (Death)
  Sender: ROCHE
  Company Number: JP-CHUGAI-2024045064

PATIENT
  Age: 77 Year
  Sex: Female

DRUGS (2)
  1. TAMIFLU [Suspect]
     Active Substance: OSELTAMIVIR PHOSPHATE
     Indication: Influenza
     Dosage: UNK UNK, BID
     Route: 050
  2. XOFLUZA [Concomitant]
     Active Substance: BALOXAVIR MARBOXIL
     Dosage: UNK
     Route: 065

REACTIONS (1)
  - Death [Fatal]
